FAERS Safety Report 7412557-7 (Version None)
Quarter: 2011Q2

REPORT INFORMATION
  Report Type: 
  Country: None (occurrence: None)
  Receive Date: 20110404
  Receipt Date: 20110322
  Transmission Date: 20111010
  Serious: Yes (Death)
  Sender: FDA-Public Use
  Company Number: JP-2011-10497

PATIENT
  Age: 25 Year
  Sex: Male

DRUGS (21)
  1. ANTISTERONE (ANTISTERONE) TABLET [Concomitant]
  2. ENTECAVIR HYDRATE (UNKNOWN) TABLET [Concomitant]
  3. VITAMINE K1 (PHYTOMENADIONE) INJECTION [Concomitant]
  4. KUHUANG INJECTION (UNKNOWN) INJECTION [Concomitant]
  5. COMPOUND DIISOPROPYLAMINE DICHLOACETATE (UNKNOWN) INJECTION [Concomitant]
  6. CHLORPHENIRAMINE MALEATE [Concomitant]
  7. CHLORPHENAMINE MALEATE (CHLORPHENAMINE MALEATE) TABLET [Concomitant]
  8. TRANSMETIL (ADEMETIONINE) [Concomitant]
  9. SULBACTAM AND CEFOPCRAZONE (UNKNOWN) [Concomitant]
  10. OPC-41061 (CODE NOT BROKEN) [Suspect]
     Indication: HEPATIC CIRRHOSIS
     Dosage: BLINDED, INFORMATION WITHHELD.
     Dates: start: 20110301, end: 20110303
  11. OPC-41061 (CODE NOT BROKEN) [Suspect]
     Indication: ASCITES
     Dosage: BLINDED, INFORMATION WITHHELD.
     Dates: start: 20110301, end: 20110303
  12. POLYENE PHOSPHATIDYL CHOLINE (UNKNOWN) [Concomitant]
  13. LEUCOGEN (LEUCOGEN) TABLET [Concomitant]
  14. ALPROSTADIL FAT EMULSIOM INJECTION [Concomitant]
  15. BERBAMINE DIHYDROCHLORIDE (UNKNOWN) TABLET [Concomitant]
  16. PIPERACILLIN-TAZOBACTAM (UNKNOWN) [Concomitant]
  17. POTASSIUM CHLORIDE ORAL LIQUID (POTASSIUM CHLORIDE) ORAL LIQUID [Concomitant]
  18. LACTOLUSE ORAL SOLUTION (UNKNOWN) ORAL SOLUTION [Concomitant]
  19. FUROSEMIDE (FUROSEMIDE) INJECTION [Concomitant]
  20. DOPAMINE HYDROCHLORIDE (DOPAMINE HYDROCHLORIDE) INJECTION [Concomitant]
  21. FUROSEMIDE TABLETS (FUROSEMIDE) TABLET [Concomitant]

REACTIONS (10)
  - CONDITION AGGRAVATED [None]
  - ELECTROLYTE IMBALANCE [None]
  - HYPOCHLORAEMIA [None]
  - ASCITES [None]
  - AGRANULOCYTOSIS [None]
  - ABDOMINAL DISTENSION [None]
  - HYPONATRAEMIA [None]
  - NAUSEA [None]
  - DISCOMFORT [None]
  - PYREXIA [None]
